FAERS Safety Report 25364370 (Version 1)
Quarter: 2025Q2

REPORT INFORMATION
  Report Type: Spontaneous
  Country: IN (occurrence: IN)
  Receive Date: 20250527
  Receipt Date: 20250527
  Transmission Date: 20250717
  Serious: Yes (Death, Other)
  Sender: PFIZER
  Company Number: IN-PFIZER INC-PV202400056304

PATIENT
  Age: 45 Year
  Sex: Male

DRUGS (2)
  1. DACOMITINIB [Suspect]
     Active Substance: DACOMITINIB
     Route: 048
     Dates: start: 202308
  2. DACOMITINIB [Suspect]
     Active Substance: DACOMITINIB
     Route: 048

REACTIONS (4)
  - Death [Fatal]
  - Blood pressure increased [Unknown]
  - Heart rate increased [Unknown]
  - Anxiety [Unknown]

NARRATIVE: CASE EVENT DATE: 20241001
